FAERS Safety Report 11939843 (Version 1)
Quarter: 2016Q1

REPORT INFORMATION
  Report Type: Report from Study
  Country: US (occurrence: US)
  Receive Date: 20160122
  Receipt Date: 20160122
  Transmission Date: 20160526
  Serious: Yes (Other)
  Sender: FDA-Public Use
  Company Number: US-KADMON PHARMACEUTICALS, LLC-KAD201504-000792

PATIENT
  Age: 36 Year
  Sex: Female

DRUGS (6)
  1. RIBAVIRIN 200 MG TABLETS [Suspect]
     Active Substance: RIBAVIRIN
     Indication: HEPATITIS C
     Route: 048
     Dates: start: 20141022, end: 20150114
  2. ABT-530 40 MG [Suspect]
     Active Substance: PIBRENTASVIR
     Indication: HEPATITIS C
     Dosage: TABLET
     Route: 048
     Dates: start: 20141022, end: 20150114
  3. ABT-493 100 MG [Suspect]
     Active Substance: GLECAPREVIR
     Indication: HEPATITIS C
     Dosage: TABLET
     Dates: start: 20141022, end: 20150114
  4. SULFAMETHOXAZOLE [Concomitant]
     Active Substance: SULFAMETHOXAZOLE
     Indication: SUBCUTANEOUS ABSCESS
     Dosage: TABLET
     Route: 048
     Dates: start: 20150131, end: 20150210
  5. GLYBURIDE. [Concomitant]
     Active Substance: GLYBURIDE
     Indication: DIABETES MELLITUS
     Route: 048
     Dates: start: 2011
  6. SULFAMETHOXAZOLE [Concomitant]
     Active Substance: SULFAMETHOXAZOLE
     Indication: SUBCUTANEOUS ABSCESS
     Dosage: TABLET
     Route: 048
     Dates: start: 20141106, end: 20141116

REACTIONS (6)
  - Nausea [None]
  - Pregnancy with contraceptive device [None]
  - Abortion spontaneous [Unknown]
  - Maternal exposure during pregnancy [None]
  - Pregnancy with injectable contraceptive [None]
  - Subcutaneous abscess [None]

NARRATIVE: CASE EVENT DATE: 20150310
